FAERS Safety Report 5087662-3 (Version None)
Quarter: 2006Q3

REPORT INFORMATION
  Report Type: 
  Country: None (occurrence: None)
  Receive Date: 20060823
  Receipt Date: 20060823
  Transmission Date: 20061208
  Serious: Yes (Other)
  Sender: FDA-Public Use
  Company Number: None

PATIENT
  Age: 70 Year
  Sex: Male
  Weight: 118.8424 kg

DRUGS (1)
  1. FLUVASTATIN [Suspect]
     Indication: LIPIDS ABNORMAL
     Dosage: 40 MG PO QHS
     Route: 048
     Dates: start: 20060607, end: 20060701

REACTIONS (3)
  - ABASIA [None]
  - INSOMNIA [None]
  - MYALGIA [None]
